FAERS Safety Report 11746517 (Version 1)
Quarter: 2015Q4

REPORT INFORMATION
  Report Type: Other
  Country: TR (occurrence: TR)
  Receive Date: 20151117
  Receipt Date: 20151117
  Transmission Date: 20160304
  Serious: Yes (Death, Hospitalization, Other)
  Sender: FDA-Public Use
  Company Number: TR-COR_00421_2015

PATIENT
  Age: 60 Year
  Sex: Female

DRUGS (2)
  1. CARBOPLATIN. [Suspect]
     Active Substance: CARBOPLATIN
     Indication: LUNG NEOPLASM MALIGNANT
     Dosage: 6 AUC MIN (4 CYCLES)
  2. PACLITAXEL. [Suspect]
     Active Substance: PACLITAXEL
     Indication: LUNG NEOPLASM MALIGNANT
     Dosage: 4 CYCLES

REACTIONS (5)
  - Disease progression [Unknown]
  - Status epilepticus [Recovered/Resolved]
  - Cardio-respiratory arrest [Fatal]
  - Posterior reversible encephalopathy syndrome [Recovering/Resolving]
  - Electroencephalogram abnormal [Unknown]
